FAERS Safety Report 9719196 (Version 1)
Quarter: 2013Q4

REPORT INFORMATION
  Report Type: Spontaneous
  Country: GB (occurrence: GB)
  Receive Date: 20131127
  Receipt Date: 20131127
  Transmission Date: 20140711
  Serious: Yes (Life-Threatening, Hospitalization, Other)
  Sender: FDA-Public Use
  Company Number: PHHY2013GB136365

PATIENT
  Age: 72 Year
  Sex: Female
  Weight: 70 kg

DRUGS (10)
  1. METHOTREXATE [Suspect]
     Indication: RHEUMATOID ARTHRITIS
     Dosage: 15 MG QW
     Route: 048
     Dates: start: 20130328, end: 20130821
  2. PROPRANOLOL [Concomitant]
     Route: 048
     Dates: start: 20081120
  3. SIMVASTATIN [Concomitant]
     Dosage: NOCTE - AT NIGHT
     Route: 048
     Dates: start: 20081120
  4. CALCICHEW D3 [Concomitant]
     Indication: BONE DISORDER
     Route: 048
     Dates: start: 20110304
  5. PREDNISOLONE [Concomitant]
     Indication: RHEUMATOID ARTHRITIS
     Route: 048
     Dates: start: 20110304, end: 20130821
  6. ALENDRONIC ACID [Concomitant]
     Indication: BONE DISORDER
     Route: 048
     Dates: start: 20130417
  7. YENTREVE [Concomitant]
     Route: 048
     Dates: start: 20111128
  8. CO-CODAMOL [Concomitant]
     Route: 048
     Dates: start: 20130320
  9. HYDROXYCHLOROQUINE [Concomitant]
     Indication: RHEUMATOID ARTHRITIS
     Route: 048
     Dates: start: 20130417
  10. METFORMIN [Concomitant]
     Indication: DIABETES MELLITUS
     Route: 048
     Dates: start: 20130417

REACTIONS (1)
  - Tonsil cancer [Recovering/Resolving]
